FAERS Safety Report 20937225 (Version 1)
Quarter: 2022Q2

REPORT INFORMATION
  Report Type: Report from Study
  Country: US (occurrence: US)
  Receive Date: 20220609
  Receipt Date: 20220609
  Transmission Date: 20220721
  Serious: Yes (Hospitalization)
  Sender: FDA-Public Use
  Company Number: US-ABBVIE-22K-163-4426852-00

PATIENT
  Sex: Male

DRUGS (4)
  1. VENCLEXTA [Suspect]
     Active Substance: VENETOCLAX
     Indication: Chronic lymphocytic leukaemia recurrent
     Dosage: TAKE ONE 10 MG TABLET DAILY FOR 7 DAYS WITH FOOD.
     Route: 048
     Dates: start: 20220323, end: 20220330
  2. VENCLEXTA [Suspect]
     Active Substance: VENETOCLAX
     Dosage: TAKE ONE 50 MG TABLET DAILY FOR 7 DAYS WITH FOOD.
     Route: 048
     Dates: start: 20220331, end: 20220407
  3. VENCLEXTA [Suspect]
     Active Substance: VENETOCLAX
     Dosage: TAKE ONE 100 MG TABLET DAILY FOR 7 DAYS WITH FOOD.
     Route: 048
     Dates: start: 20220408, end: 20220415
  4. VENCLEXTA [Suspect]
     Active Substance: VENETOCLAX
     Dosage: TAKE TWO 100 MG TABLET DAILY FOR 7 DAYS WITH FOOD.
     Route: 048
     Dates: start: 20220416, end: 20220423

REACTIONS (1)
  - Cardiac failure congestive [Unknown]

NARRATIVE: CASE EVENT DATE: 20220101
